FAERS Safety Report 6386003-9 (Version None)
Quarter: 2009Q4

REPORT INFORMATION
  Report Type: 
  Country: None (occurrence: None)
  Receive Date: 20091002
  Receipt Date: 20081216
  Transmission Date: 20100525
  Serious: No
  Sender: FDA-Public Use
  Company Number: US-ASTRAZENECA-2008UW24372

PATIENT
  Sex: Female
  Weight: 74.2 kg

DRUGS (9)
  1. ARIMIDEX [Suspect]
     Indication: BREAST CANCER
     Route: 048
     Dates: start: 20071001
  2. LITHIUM [Concomitant]
  3. DIURETIC [Concomitant]
  4. KLONOPIN [Concomitant]
  5. AMBIEN [Concomitant]
  6. DESIPRAMINE [Concomitant]
  7. LOVAZA [Concomitant]
  8. CALCIUM [Concomitant]
  9. GLUCOSAMINE [Concomitant]

REACTIONS (4)
  - ARTHRALGIA [None]
  - GAIT DISTURBANCE [None]
  - HAEMOGLOBIN DECREASED [None]
  - WEIGHT INCREASED [None]
